FAERS Safety Report 6850310-3 (Version None)
Quarter: 2010Q3

REPORT INFORMATION
  Report Type: 
  Country: None (occurrence: None)
  Receive Date: 20100716
  Receipt Date: 20071012
  Transmission Date: 20110219
  Serious: No
  Sender: FDA-Public Use
  Company Number: US-PFIZER INC-2007087164

PATIENT
  Sex: Female

DRUGS (4)
  1. CHANTIX [Suspect]
     Indication: SMOKING CESSATION THERAPY
     Route: 048
     Dates: start: 20071001, end: 20071011
  2. LEVORA 0.15/30-28 [Concomitant]
  3. MULTI-VITAMINS [Concomitant]
  4. CALCIUM [Concomitant]

REACTIONS (1)
  - NAUSEA [None]
